FAERS Safety Report 9018015 (Version 1)
Quarter: 2013Q1

REPORT INFORMATION
  Report Type: Spontaneous
  Country: US (occurrence: None)
  Receive Date: 20130110
  Receipt Date: 20130110
  Transmission Date: 20140127
  Serious: Yes (Death)
  Sender: FDA-Public Use
  Company Number: None

PATIENT
  Age: 60 Year
  Sex: Female

DRUGS (7)
  1. REVLIMID 10MG CELGENE [Suspect]
     Indication: PLASMA CELL MYELOMA
     Route: 048
     Dates: start: 201106, end: 201202
  2. ZANTAC [Concomitant]
  3. ZOFRAN [Concomitant]
  4. METHADONE [Concomitant]
  5. ACYCLOVIR [Concomitant]
  6. DEXAMETHASONE [Concomitant]
  7. POTASSIUM [Concomitant]

REACTIONS (1)
  - Therapeutic response decreased [None]
